FAERS Safety Report 5750711-0 (Version None)
Quarter: 2008Q2

REPORT INFORMATION
  Report Type: 
  Country: None (occurrence: None)
  Receive Date: 20080523
  Receipt Date: 20080523
  Transmission Date: 20081010
  Serious: Yes (Hospitalization)
  Sender: FDA-Public Use
  Company Number: None

PATIENT
  Sex: Female
  Weight: 59 kg

DRUGS (5)
  1. CISPLATIN [Suspect]
     Dosage: 83 MG
  2. DOXORUBICIN HYDROCHLORIDE [Suspect]
     Dosage: 75 MG
  3. TAXOL [Suspect]
     Dosage: 267 MG
  4. AMLODIPINE [Concomitant]
  5. ATENLOL [Concomitant]

REACTIONS (10)
  - BLOOD CHLORIDE DECREASED [None]
  - BLOOD UREA INCREASED [None]
  - DEHYDRATION [None]
  - ELECTROCARDIOGRAM ST-T CHANGE [None]
  - HEART RATE DECREASED [None]
  - HYPOVOLAEMIA [None]
  - NAUSEA [None]
  - ORAL INTAKE REDUCED [None]
  - SYNCOPE [None]
  - TREATMENT NONCOMPLIANCE [None]
